FAERS Safety Report 19454012 (Version 3)
Quarter: 2021Q3

REPORT INFORMATION
  Report Type: Spontaneous
  Country: NL (occurrence: NL)
  Receive Date: 20210623
  Receipt Date: 20210709
  Transmission Date: 20211014
  Serious: Yes (Other)
  Sender: FDA-Public Use
  Company Number: NL-ORGANON-O2106NLD001918

PATIENT
  Age: 41 Year
  Sex: Female

DRUGS (1)
  1. IMPLANON NXT [Suspect]
     Active Substance: ETONOGESTREL
     Indication: CONTRACEPTION
     Dosage: 1 IMPLANT, LEFT UPPER ARM
     Route: 059

REACTIONS (4)
  - Device placement issue [Recovered/Resolved]
  - Affective disorder [Recovered/Resolved]
  - Device embolisation [Recovered/Resolved]
  - Complication associated with device [Recovered/Resolved]
